FAERS Safety Report 19180213 (Version 1)
Quarter: 2021Q2

REPORT INFORMATION
  Report Type: Spontaneous
  Country: CA (occurrence: CA)
  Receive Date: 20210426
  Receipt Date: 20210426
  Transmission Date: 20210717
  Serious: Yes (Hospitalization)
  Sender: FDA-Public Use
  Company Number: NVSC2021CA090188

PATIENT
  Age: 92 Year
  Sex: Female
  Weight: 57 kg

DRUGS (1)
  1. SANDOZ CIPROFLOXACIN [Suspect]
     Active Substance: CIPROFLOXACIN
     Indication: CYSTITIS ESCHERICHIA
     Dosage: 2 UNK, QD (2 EVERY 1 DAY)
     Route: 048

REACTIONS (3)
  - Blister [Unknown]
  - Pemphigoid [Unknown]
  - Purpura [Unknown]
